FAERS Safety Report 6665348-9 (Version None)
Quarter: 2010Q2

REPORT INFORMATION
  Report Type: 
  Country: None (occurrence: None)
  Receive Date: 20100402
  Receipt Date: 20100331
  Transmission Date: 20101027
  Serious: Yes (Hospitalization)
  Sender: FDA-Public Use
  Company Number: US-TEVA-225762USA

PATIENT
  Sex: Female

DRUGS (1)
  1. GABAPENTIN [Suspect]
     Route: 048

REACTIONS (3)
  - COUGH [None]
  - FOREIGN BODY [None]
  - THROAT IRRITATION [None]
